FAERS Safety Report 22337769 (Version 1)
Quarter: 2023Q2

REPORT INFORMATION
  Report Type: Spontaneous
  Country: US (occurrence: US)
  Receive Date: 20230518
  Receipt Date: 20230518
  Transmission Date: 20230722
  Serious: Yes (Other)
  Sender: FDA-Public Use
  Company Number: US-COLLEGIUM PHARMACEUTICAL, INC.-20230100044

PATIENT

DRUGS (2)
  1. XTAMPZA ER [Suspect]
     Active Substance: OXYCODONE
     Indication: Product used for unknown indication
     Dosage: 18 MILLIGRAM, BID
     Route: 065
  2. UNSPECIFIED INGREDIENT [Concomitant]
     Active Substance: UNSPECIFIED INGREDIENT
     Indication: Breakthrough pain
     Dosage: UNK, UNKNOWN
     Route: 065

REACTIONS (5)
  - Drug withdrawal syndrome [Unknown]
  - Malaise [Unknown]
  - Head discomfort [Unknown]
  - Abdominal discomfort [Unknown]
  - Drug ineffective [Unknown]

NARRATIVE: CASE EVENT DATE: 20221201
